FAERS Safety Report 7032216-2 (Version None)
Quarter: 2010Q4

REPORT INFORMATION
  Report Type: 
  Country: None (occurrence: None)
  Receive Date: 20101005
  Receipt Date: 20100413
  Transmission Date: 20110411
  Serious: Yes (Disabling)
  Sender: FDA-Public Use
  Company Number: APP200900450

PATIENT
  Age: 41 Year
  Sex: Female

DRUGS (7)
  1. NAROPIN [Suspect]
     Indication: MUSCULOSKELETAL PAIN
     Dosage: 500 ML, INTRA-ARTICULAR; 2 ML, BOLUS EVERY 30 MINUTES AS NEEDED
     Dates: start: 20060331
  2. CADD PRIZM PAIN PUMP [Suspect]
     Indication: MUSCULOSKELETAL PAIN
     Dates: start: 20050926
  3. CADD PRIZM PAIN PUMP [Suspect]
     Indication: MUSCULOSKELETAL PAIN
     Dates: start: 20060331
  4. BUPIVACAINE (BUPIVACAINE) [Suspect]
     Indication: MUSCULOSKELETAL PAIN
     Dosage: 500 ML, INTRA-ARTICULAR; 2 ML, BOLUS EVERY 30 MINUTES AS NEEDED
     Dates: start: 20050926
  5. MARCAINE WITH EPINEPHRINE (MARCAINE WITH EPINEPHRINE /00879801/) [Suspect]
     Indication: PREMEDICATION
     Dosage: 5 ML, WITH 1% LIDOCAINE; 30 ML, 1:200,000, LOCAL INFILTRATION
     Dates: start: 20060331
  6. DEXAMETHASONE (DEXAMETHASONE) [Suspect]
     Indication: PRODUCT USED FOR UNKNOWN INDICATION
     Dosage: 2 ML
     Dates: start: 20060331
  7. ANCEF [Concomitant]

REACTIONS (17)
  - ARTHRITIS INFECTIVE [None]
  - CERVICAL SPINAL STENOSIS [None]
  - FALL [None]
  - INTERVERTEBRAL DISC PROTRUSION [None]
  - JOINT CREPITATION [None]
  - JOINT INJURY [None]
  - LIGAMENT RUPTURE [None]
  - MUSCLE SPASMS [None]
  - MUSCULOSKELETAL PAIN [None]
  - MUSCULOSKELETAL STIFFNESS [None]
  - MYELOMALACIA [None]
  - NECK PAIN [None]
  - PARAESTHESIA [None]
  - SENSORY DISTURBANCE [None]
  - SPINAL OSTEOARTHRITIS [None]
  - STITCH ABSCESS [None]
  - TENDON PAIN [None]
